FAERS Safety Report 7541694-1 (Version None)
Quarter: 2011Q2

REPORT INFORMATION
  Report Type: 
  Country: None (occurrence: None)
  Receive Date: 20110531
  Receipt Date: 20110518
  Transmission Date: 20111010
  Serious: Yes (Other)
  Sender: FDA-Public Use
  Company Number: 2011028608

PATIENT
  Age: 30 Year
  Sex: Male

DRUGS (1)
  1. PRIVIGEN [Suspect]
     Dosage: 10 G
     Route: 042
     Dates: start: 20110516

REACTIONS (2)
  - SWELLING [None]
  - PARAESTHESIA [None]
